FAERS Safety Report 7853187 (Version 3)
Quarter: 2012Q4

REPORT INFORMATION
  Report Type: 
  Country: US (occurrence: US)
  Receive Date: 20110314
  Receipt Date: 20121101
  Transmission Date: 20130627
  Serious: Yes (Other)
  Sender: FDA-Public Use
  Company Number: US-ASTRAZENECA-2011SE11840

PATIENT
  Age: 67 Year
  Sex: Female

DRUGS (5)
  1. NEXIUM [Suspect]
     Route: 048
  2. ANASTROZOLE [Suspect]
     Route: 048
  3. CRESTOR [Suspect]
     Route: 048
  4. PREVACID [Concomitant]
  5. PREMARIN [Concomitant]

REACTIONS (2)
  - Oestrogen receptor positive breast cancer [Unknown]
  - Lower limb fracture [Unknown]
